FAERS Safety Report 8299466-9 (Version None)
Quarter: 2012Q2

REPORT INFORMATION
  Report Type: 
  Country: None (occurrence: None)
  Receive Date: 20120417
  Receipt Date: 20120403
  Transmission Date: 20120825
  Serious: Yes (Death)
  Sender: FDA-Public Use
  Company Number: 2012S1000085

PATIENT
  Age: 59 Year
  Sex: Female

DRUGS (4)
  1. INOMAX [Suspect]
     Indication: OXYGEN SATURATION DECREASED
     Dosage: 40 PPM; CONT; INH
     Route: 055
     Dates: start: 20120331, end: 20120331
  2. INOMAX [Suspect]
     Indication: PULMONARY HYPERTENSION
     Dosage: 40 PPM; CONT; INH
     Route: 055
     Dates: start: 20120331, end: 20120331
  3. INOMAX [Suspect]
     Indication: PULMONARY HYPERTENSION
     Dosage: 40 PPM; CONT; INH
     Route: 055
     Dates: start: 20120331, end: 20120331
  4. INOMAX [Suspect]
     Indication: OXYGEN SATURATION DECREASED
     Dosage: 40 PPM; CONT; INH
     Route: 055
     Dates: start: 20120331, end: 20120331

REACTIONS (8)
  - SHOCK [None]
  - BRAIN OEDEMA [None]
  - RENAL FAILURE ACUTE [None]
  - OFF LABEL USE [None]
  - BRAIN DEATH [None]
  - THERAPEUTIC RESPONSE DECREASED [None]
  - PULSELESS ELECTRICAL ACTIVITY [None]
  - DRUG ADMINISTRATION ERROR [None]
